FAERS Safety Report 11025377 (Version 1)
Quarter: 2015Q2

REPORT INFORMATION
  Report Type: Spontaneous
  Country: HR (occurrence: None)
  Receive Date: 20150410
  Receipt Date: 20150410
  Transmission Date: 20150821
  Serious: Yes (Death)
  Sender: FDA-Public Use
  Company Number: 8019589

PATIENT
  Age: 55 Year
  Sex: Male

DRUGS (2)
  1. LEVOTHYROXINE (LEVOTHYROXINE) (LEVOTHYROXINE SODIUM) [Suspect]
     Active Substance: LEVOTHYROXINE
     Indication: HYPOTHYROIDISM
  2. SUNITINIB (SUNITINIB) [Concomitant]
     Active Substance: SUNITINIB

REACTIONS (10)
  - Hypertension [None]
  - Treatment noncompliance [None]
  - Weight decreased [None]
  - Decreased appetite [None]
  - Paraesthesia [None]
  - Pulmonary embolism [None]
  - Palmar-plantar erythrodysaesthesia syndrome [None]
  - Nausea [None]
  - Constipation [None]
  - Stomatitis [None]
